FAERS Safety Report 24810614 (Version 4)
Quarter: 2025Q1

REPORT INFORMATION
  Report Type: Spontaneous
  Country: GB (occurrence: GB)
  Receive Date: 20250106
  Receipt Date: 20250331
  Transmission Date: 20250408
  Serious: Yes (Hospitalization, Other)
  Sender: MYLAN
  Company Number: GB-002147023-NVSC2023GB152984

PATIENT
  Age: 48 Year
  Sex: Female
  Weight: 50 kg

DRUGS (58)
  1. OXALIPLATIN [Suspect]
     Active Substance: OXALIPLATIN
     Indication: Colorectal cancer metastatic
  2. OXALIPLATIN [Suspect]
     Active Substance: OXALIPLATIN
  3. OXALIPLATIN [Suspect]
     Active Substance: OXALIPLATIN
  4. OXALIPLATIN [Suspect]
     Active Substance: OXALIPLATIN
  5. OXALIPLATIN [Suspect]
     Active Substance: OXALIPLATIN
  6. OXALIPLATIN [Suspect]
     Active Substance: OXALIPLATIN
  7. OXALIPLATIN [Suspect]
     Active Substance: OXALIPLATIN
  8. OXALIPLATIN [Suspect]
     Active Substance: OXALIPLATIN
  9. OXALIPLATIN [Suspect]
     Active Substance: OXALIPLATIN
  10. OXALIPLATIN [Suspect]
     Active Substance: OXALIPLATIN
  11. ZOPICLONE [Suspect]
     Active Substance: ZOPICLONE
     Indication: Insomnia
  12. BEVACIZUMAB [Suspect]
     Active Substance: BEVACIZUMAB
     Indication: Colorectal cancer metastatic
  13. BEVACIZUMAB [Suspect]
     Active Substance: BEVACIZUMAB
  14. LEUCOVORIN [Suspect]
     Active Substance: LEUCOVORIN\LEUCOVORIN CALCIUM
     Indication: Colorectal cancer metastatic
  15. LEUCOVORIN [Suspect]
     Active Substance: LEUCOVORIN\LEUCOVORIN CALCIUM
  16. LEUCOVORIN [Suspect]
     Active Substance: LEUCOVORIN\LEUCOVORIN CALCIUM
  17. LEUCOVORIN [Suspect]
     Active Substance: LEUCOVORIN\LEUCOVORIN CALCIUM
  18. FLUOROURACIL [Suspect]
     Active Substance: FLUOROURACIL
     Indication: Colorectal cancer metastatic
  19. FLUOROURACIL [Suspect]
     Active Substance: FLUOROURACIL
  20. FLUOROURACIL [Suspect]
     Active Substance: FLUOROURACIL
  21. FLUOROURACIL [Suspect]
     Active Substance: FLUOROURACIL
  22. FLUOROURACIL [Suspect]
     Active Substance: FLUOROURACIL
  23. FLUOROURACIL [Suspect]
     Active Substance: FLUOROURACIL
  24. FLUOROURACIL [Suspect]
     Active Substance: FLUOROURACIL
  25. FLUOROURACIL [Suspect]
     Active Substance: FLUOROURACIL
  26. FLUOROURACIL [Suspect]
     Active Substance: FLUOROURACIL
  27. FLUOROURACIL [Suspect]
     Active Substance: FLUOROURACIL
  28. FLUOROURACIL [Suspect]
     Active Substance: FLUOROURACIL
  29. FLUOROURACIL [Suspect]
     Active Substance: FLUOROURACIL
  30. FLUOROURACIL [Suspect]
     Active Substance: FLUOROURACIL
  31. FLUOROURACIL [Suspect]
     Active Substance: FLUOROURACIL
  32. LEUCOVORIN CALCIUM [Suspect]
     Active Substance: LEUCOVORIN CALCIUM
     Indication: Colorectal cancer metastatic
  33. LEUCOVORIN CALCIUM [Suspect]
     Active Substance: LEUCOVORIN CALCIUM
  34. LEUCOVORIN CALCIUM [Suspect]
     Active Substance: LEUCOVORIN CALCIUM
  35. LEUCOVORIN CALCIUM [Suspect]
     Active Substance: LEUCOVORIN CALCIUM
  36. LEUCOVORIN CALCIUM [Suspect]
     Active Substance: LEUCOVORIN CALCIUM
  37. LEUCOVORIN CALCIUM [Suspect]
     Active Substance: LEUCOVORIN CALCIUM
  38. LEUCOVORIN CALCIUM [Suspect]
     Active Substance: LEUCOVORIN CALCIUM
  39. LEUCOVORIN CALCIUM [Suspect]
     Active Substance: LEUCOVORIN CALCIUM
  40. LEUCOVORIN CALCIUM [Suspect]
     Active Substance: LEUCOVORIN CALCIUM
  41. LEUCOVORIN CALCIUM [Suspect]
     Active Substance: LEUCOVORIN CALCIUM
  42. LEUCOVORIN CALCIUM [Suspect]
     Active Substance: LEUCOVORIN CALCIUM
  43. LEUCOVORIN CALCIUM [Suspect]
     Active Substance: LEUCOVORIN CALCIUM
  44. LEUCOVORIN CALCIUM [Suspect]
     Active Substance: LEUCOVORIN CALCIUM
  45. LEUCOVORIN CALCIUM [Suspect]
     Active Substance: LEUCOVORIN CALCIUM
  46. LEUCOVORIN CALCIUM [Suspect]
     Active Substance: LEUCOVORIN CALCIUM
  47. LEUCOVORIN CALCIUM [Suspect]
     Active Substance: LEUCOVORIN CALCIUM
  48. LEUCOVORIN CALCIUM [Suspect]
     Active Substance: LEUCOVORIN CALCIUM
  49. XARELTO [Concomitant]
     Active Substance: RIVAROXABAN
     Indication: Deep vein thrombosis
  50. XARELTO [Concomitant]
     Active Substance: RIVAROXABAN
     Indication: Pulmonary embolism
  51. BENZYDAMINE [Concomitant]
     Active Substance: BENZYDAMINE
     Indication: Stomatitis
  52. BENZYDAMINE [Concomitant]
     Active Substance: BENZYDAMINE
  53. BENZYDAMINE [Concomitant]
     Active Substance: BENZYDAMINE
  54. MORPHINE SULFATE [Concomitant]
     Active Substance: MORPHINE SULFATE
     Indication: Abdominal pain lower
  55. MORPHINE SULFATE [Concomitant]
     Active Substance: MORPHINE SULFATE
  56. BENZYDAMINE HYDROCHLORIDE [Concomitant]
     Active Substance: BENZYDAMINE HYDROCHLORIDE
     Indication: Stomatitis
  57. ZOPICLONE [Concomitant]
     Active Substance: ZOPICLONE
     Indication: Insomnia
  58. BEVACIZUMAB [Suspect]
     Active Substance: BEVACIZUMAB
     Indication: Colorectal cancer metastatic

REACTIONS (4)
  - Ascites [Recovering/Resolving]
  - Malignant neoplasm progression [Unknown]
  - Colorectal cancer metastatic [Unknown]
  - Condition aggravated [Unknown]

NARRATIVE: CASE EVENT DATE: 20230630
